FAERS Safety Report 7297740-6 (Version None)
Quarter: 2011Q1

REPORT INFORMATION
  Report Type: 
  Country: None (occurrence: None)
  Receive Date: 20110214
  Receipt Date: 20110214
  Transmission Date: 20110831
  Serious: Yes (Other)
  Sender: FDA-Public Use
  Company Number: None

PATIENT
  Age: 37 Year
  Sex: Female
  Weight: 54.4316 kg

DRUGS (6)
  1. IBUPROFEN [Concomitant]
  2. ROBITUSSIN DM [Concomitant]
  3. CYMBALTA [Suspect]
     Indication: ANXIETY
     Dosage: 60 MG OPD PO; 30 MG OPD PO
     Route: 048
     Dates: start: 20100917, end: 20101219
  4. CYMBALTA [Suspect]
     Indication: MYALGIA
     Dosage: 60 MG OPD PO; 30 MG OPD PO
     Route: 048
     Dates: start: 20100917, end: 20101219
  5. CYMBALTA [Suspect]
     Indication: ANXIETY
     Dosage: 60 MG OPD PO; 30 MG OPD PO
     Route: 048
     Dates: start: 20101220, end: 20110205
  6. CYMBALTA [Suspect]
     Indication: MYALGIA
     Dosage: 60 MG OPD PO; 30 MG OPD PO
     Route: 048
     Dates: start: 20101220, end: 20110205

REACTIONS (10)
  - HOT FLUSH [None]
  - NAUSEA [None]
  - PARAESTHESIA [None]
  - DIARRHOEA [None]
  - HYPERHIDROSIS [None]
  - ABNORMAL DREAMS [None]
  - MUSCLE SPASMS [None]
  - DIZZINESS [None]
  - HEADACHE [None]
  - INSOMNIA [None]
